FAERS Safety Report 8605969-7 (Version None)
Quarter: 2012Q3

REPORT INFORMATION
  Report Type: 
  Country: None (occurrence: None)
  Receive Date: 20120820
  Receipt Date: 20120809
  Transmission Date: 20120928
  Serious: Yes (Hospitalization, Other)
  Sender: FDA-Public Use
  Company Number: US-ASTRAZENECA-2011SE70378

PATIENT
  Age: 58 Year
  Sex: Female
  Weight: 100.7 kg

DRUGS (15)
  1. NEOMYCIN-POLYMYXIN-HC [Concomitant]
     Dosage: 3.5-10000-1 SOLN 5 DROPS IN RIGHT EAR FOUR TIMES A DAY
  2. PRILOSEC [Suspect]
     Indication: GASTROOESOPHAGEAL REFLUX DISEASE
     Route: 048
     Dates: end: 20110101
  3. VENTOLIN HFA [Concomitant]
     Indication: DYSPNOEA
     Dosage: 108 (90 BASE) AERS 2 INHALATIONS FOUR TIMES A DAY AS NEEDED
  4. NEXIUM [Suspect]
     Indication: GASTROOESOPHAGEAL REFLUX DISEASE
     Route: 048
     Dates: start: 20110101
  5. ASPIRIN [Concomitant]
  6. LISINOPRIL [Concomitant]
     Indication: BLOOD PRESSURE ABNORMAL
     Route: 048
  7. CLOTRIMAZOLE AND BETAMETHASONE DIPROPIONATE [Concomitant]
     Indication: RASH
     Dosage: 1-0.05 % APPLY TWICE DAILY
  8. LYRICA [Concomitant]
  9. PERCOCET [Concomitant]
     Indication: PAIN
     Dosage: 5-325 MG 5 TIMES A DAY AS NEEDED
  10. ASPIRIN [Concomitant]
  11. ALPRAZOLAM [Concomitant]
     Indication: ANXIETY
  12. CRESTOR [Suspect]
     Route: 048
  13. SECTRAL [Concomitant]
  14. HYOSCYAMINE SULFATE [Concomitant]
     Dosage: 0.125 MG ONE BEFORE MEALS AND AT BED TIME
  15. NITROSTAT [Concomitant]
     Indication: CHEST PAIN
     Dosage: 0.4 MG SUBL 1 SL AS NEEDED

REACTIONS (24)
  - ADVERSE EVENT [None]
  - MYOCARDIAL INFARCTION [None]
  - ABDOMINAL PAIN UPPER [None]
  - GASTROOESOPHAGEAL REFLUX DISEASE [None]
  - DYSPHAGIA [None]
  - FALL [None]
  - BURNING SENSATION [None]
  - NODAL ARRHYTHMIA [None]
  - HYPERSENSITIVITY [None]
  - DRUG INEFFECTIVE [None]
  - ASTHENIA [None]
  - PARAESTHESIA [None]
  - CHEST PAIN [None]
  - INTENTIONAL DRUG MISUSE [None]
  - CHOKING [None]
  - OROPHARYNGEAL PAIN [None]
  - OESOPHAGEAL PAIN [None]
  - MEMORY IMPAIRMENT [None]
  - THERAPEUTIC RESPONSE UNEXPECTED [None]
  - HYPOAESTHESIA [None]
  - ARRHYTHMIA [None]
  - HYPERTENSION [None]
  - GASTRITIS [None]
  - SLEEP DISORDER [None]
